FAERS Safety Report 5951966-X (Version None)
Quarter: 2008Q4

REPORT INFORMATION
  Report Type: 
  Country: None (occurrence: None)
  Receive Date: 20081113
  Receipt Date: 20071003
  Transmission Date: 20090506
  Serious: No
  Sender: FDA-Public Use
  Company Number: A0686375A

PATIENT
  Age: 30 Year
  Sex: Female

DRUGS (5)
  1. COREG [Suspect]
     Route: 065
  2. ZESTORETIC [Suspect]
  3. CAPTOPRIL [Suspect]
  4. CARDIZEM [Suspect]
  5. ATENOLOL [Suspect]

REACTIONS (1)
  - DRUG INEFFECTIVE [None]
